FAERS Safety Report 8357582-7 (Version None)
Quarter: 2012Q2

REPORT INFORMATION
  Report Type: 
  Country: None (occurrence: None)
  Receive Date: 20120514
  Receipt Date: 20120507
  Transmission Date: 20120825
  Serious: No
  Sender: FDA-Public Use
  Company Number: FR-ABBOTT-12P-056-0921770-00

PATIENT
  Sex: Male
  Weight: 65 kg

DRUGS (7)
  1. PREDNISOLONE [Concomitant]
     Indication: EAR INFECTION
     Route: 048
     Dates: start: 20101125, end: 20101130
  2. OTHER UNSPECIFIED ANTIBIOTIC [Concomitant]
     Indication: PRODUCT USED FOR UNKNOWN INDICATION
  3. LASOPRAZOLE [Concomitant]
     Indication: MIGRAINE
     Route: 048
     Dates: start: 20101202
  4. KETOPROFEN [Concomitant]
     Indication: MIGRAINE
     Route: 048
     Dates: start: 20101202
  5. ACETAMINOPHEN [Concomitant]
     Indication: EAR INFECTION
     Route: 048
     Dates: start: 20101125, end: 20101130
  6. CLARITHROMYCIN [Suspect]
     Indication: EAR INFECTION
     Route: 048
     Dates: start: 20101125, end: 20101130
  7. FLUOCINOLONE ACETONIDE, POLYMYXINE B, NEOMYCIN (ANTIBIOSYNALARR) [Concomitant]
     Indication: EAR INFECTION
     Route: 001
     Dates: start: 20101125, end: 20101205

REACTIONS (2)
  - HYPERACUSIS [None]
  - HEADACHE [None]
